FAERS Safety Report 19981764 (Version 1)
Quarter: 2021Q4

REPORT INFORMATION
  Report Type: Spontaneous
  Country: JP (occurrence: JP)
  Receive Date: 20211022
  Receipt Date: 20211022
  Transmission Date: 20220303
  Serious: Yes (Other)
  Sender: FDA-Public Use
  Company Number: JP-NOVOPROD-857298

PATIENT
  Age: 42 Year
  Sex: Female

DRUGS (2)
  1. INSULIN ASPART [Suspect]
     Active Substance: INSULIN ASPART
     Indication: Type 1 diabetes mellitus
     Dosage: 18 IU, QD
     Route: 058
  2. INSULIN GLARGINE RECOMBINANT [Suspect]
     Active Substance: INSULIN GLARGINE
     Indication: Type 1 diabetes mellitus
     Dosage: 12 IU, QD
     Route: 058

REACTIONS (3)
  - Hypoglycaemia [Recovered/Resolved]
  - Cardiac failure congestive [Recovering/Resolving]
  - Intentional overdose [Unknown]
